FAERS Safety Report 4825747-4 (Version None)
Quarter: 2005Q4

REPORT INFORMATION
  Report Type: 
  Country: None (occurrence: None)
  Receive Date: 20051111
  Receipt Date: 20030624
  Transmission Date: 20060501
  Serious: Yes (Death)
  Sender: FDA-Public Use
  Company Number: PHFR2003GB02518

PATIENT
  Age: 33 Year
  Sex: Male

DRUGS (2)
  1. CLOZARIL [Suspect]
     Indication: SCHIZOPHRENIA
     Route: 048
     Dates: start: 20030515
  2. BENZHEXOL [Concomitant]

REACTIONS (4)
  - ARTERITIS [None]
  - EOSINOPHILIC MYOCARDITIS [None]
  - FLUID RETENTION [None]
  - PULMONARY OEDEMA [None]
